FAERS Safety Report 24777700 (Version 1)
Quarter: 2024Q4

REPORT INFORMATION
  Report Type: Spontaneous
  Country: US (occurrence: US)
  Receive Date: 20241226
  Receipt Date: 20241226
  Transmission Date: 20250114
  Serious: Yes (Hospitalization)
  Sender: PROVEPHARM
  Company Number: US-Provepharm-2167808

PATIENT
  Age: 82 Year
  Sex: Female

DRUGS (1)
  1. BLUDIGO [Suspect]
     Active Substance: INDIGOTINDISULFONATE SODIUM
     Indication: Ureteric injury
     Dates: start: 20241209, end: 20241209

REACTIONS (1)
  - Extravasation [Recovering/Resolving]

NARRATIVE: CASE EVENT DATE: 20241210
